FAERS Safety Report 14431365 (Version 2)
Quarter: 2018Q1

REPORT INFORMATION
  Report Type: Spontaneous
  Country: US (occurrence: US)
  Receive Date: 20180124
  Receipt Date: 20180313
  Transmission Date: 20180509
  Serious: No
  Sender: FDA-Public Use
  Company Number: US-PFIZER INC-2018028896

PATIENT
  Age: 85 Year
  Sex: Female

DRUGS (2)
  1. EUCRISA [Suspect]
     Active Substance: CRISABOROLE
     Dosage: UNK, 2X/DAY (APPLY TO AFFECTED AREA )
     Dates: end: 201801
  2. EUCRISA [Suspect]
     Active Substance: CRISABOROLE
     Dosage: UNK
     Dates: start: 20171219, end: 20180221

REACTIONS (7)
  - Pruritus [Unknown]
  - Drug effect decreased [Unknown]
  - Burning sensation [Unknown]
  - Skin exfoliation [Unknown]
  - Rash [Unknown]
  - Skin disorder [Unknown]
  - Scab [Unknown]
